FAERS Safety Report 4803978-7 (Version None)
Quarter: 2005Q3

REPORT INFORMATION
  Report Type: 
  Country: None (occurrence: None)
  Receive Date: 20050920
  Receipt Date: 20050808
  Transmission Date: 20060218
  Serious: No
  Sender: FDA-Public Use
  Company Number: US-YAMANOUCHI-YPA20050357

PATIENT
  Sex: Male

DRUGS (4)
  1. VESICARE [Suspect]
     Dosage: 10 MG PO
     Route: 048
     Dates: start: 20050101
  2. COUMADIN [Suspect]
  3. AVAPRO [Concomitant]
  4. ACETA [Concomitant]

REACTIONS (2)
  - CONSTIPATION [None]
  - PENILE HAEMORRHAGE [None]
